FAERS Safety Report 24293234 (Version 1)
Quarter: 2024Q3

REPORT INFORMATION
  Report Type: Spontaneous
  Country: US (occurrence: None)
  Receive Date: 20240906
  Receipt Date: 20240906
  Transmission Date: 20241017
  Serious: No
  Sender: DOMPE FARMACEUTICI
  Company Number: US-FARMAPROD-202312-3648

PATIENT
  Age: 64 Year
  Sex: Female

DRUGS (21)
  1. OXERVATE [Suspect]
     Active Substance: CENEGERMIN-BKBJ
     Indication: Neurotrophic keratopathy
     Route: 047
     Dates: start: 20231204
  2. OXERVATE [Suspect]
     Active Substance: CENEGERMIN-BKBJ
  3. MONTELUKAST SODIUM [Concomitant]
     Active Substance: MONTELUKAST\MONTELUKAST SODIUM
  4. ARIPIPRAZOLE [Concomitant]
     Active Substance: ARIPIPRAZOLE
  5. FLUTICASONE PROPIONATE [Concomitant]
     Active Substance: FLUTICASONE PROPIONATE
  6. ONDANSETRON HYDROCHLORIDE [Concomitant]
     Active Substance: ONDANSETRON HYDROCHLORIDE
  7. CARVEDILOL [Concomitant]
     Active Substance: CARVEDILOL
  8. LAMICTAL [Concomitant]
     Active Substance: LAMOTRIGINE
  9. LAMOTRIGINE (BLUE) [Concomitant]
  10. ENTRESTO [Concomitant]
     Active Substance: SACUBITRIL\VALSARTAN
     Dosage: 24 MG-26 MG
  11. EPIPEN [Concomitant]
     Active Substance: EPINEPHRINE
     Dosage: 0.3MG/0.3 AUTO INJECTOR
  12. ALBUTEROL SULFATE [Concomitant]
     Active Substance: ALBUTEROL SULFATE
  13. FUROSEMIDE [Concomitant]
     Active Substance: FUROSEMIDE
     Dosage: VIAL
  14. CLOPIDOGREL [Concomitant]
     Active Substance: CLOPIDOGREL BISULFATE
  15. DULOXETINE HYDROCHLORIDE [Concomitant]
     Active Substance: DULOXETINE HYDROCHLORIDE
  16. MYRBETRIQ [Concomitant]
     Active Substance: MIRABEGRON
     Dosage: FOR 24 HOURS
  17. JARDIANCE [Concomitant]
     Active Substance: EMPAGLIFLOZIN
  18. PANTOPRAZOLE SODIUM [Concomitant]
     Active Substance: PANTOPRAZOLE SODIUM
  19. COMBIVENT RESPIMAT [Concomitant]
     Active Substance: ALBUTEROL SULFATE\IPRATROPIUM BROMIDE
  20. VITAMIN C, D, MG OIL SUPLLEMENT [Concomitant]
  21. CLARITIN [Concomitant]
     Active Substance: LORATADINE

REACTIONS (9)
  - Device use issue [Unknown]
  - Headache [Unknown]
  - Eye irritation [Unknown]
  - Eye pain [Unknown]
  - Eye irritation [Unknown]
  - Foreign body sensation in eyes [Unknown]
  - Ocular hyperaemia [Unknown]
  - Food poisoning [Unknown]
  - Eye infection [Unknown]

NARRATIVE: CASE EVENT DATE: 20231223
